FAERS Safety Report 8075722-4 (Version None)
Quarter: 2012Q1

REPORT INFORMATION
  Report Type: 
  Country: None (occurrence: None)
  Receive Date: 20120125
  Receipt Date: 20120125
  Transmission Date: 20120608
  Serious: No
  Sender: FDA-Public Use
  Company Number: None

PATIENT
  Sex: Female

DRUGS (3)
  1. ORENCIA [Suspect]
     Indication: RHEUMATOID ARTHRITIS
     Dosage: 125 MG/ML WEEKLY SUBCUTANEOUSLY
     Route: 058
     Dates: start: 20120118
  2. ORENCIA [Suspect]
     Indication: RHEUMATOID ARTHRITIS
     Dosage: 125 MG/ML WEEKLY SUBCUTANEOUSLY
     Route: 058
     Dates: start: 20120104
  3. ORENCIA [Suspect]
     Indication: RHEUMATOID ARTHRITIS
     Dosage: 125 MG/ML WEEKLY SUBCUTANEOUSLY
     Route: 058
     Dates: start: 20120111

REACTIONS (1)
  - MIGRAINE [None]
